FAERS Safety Report 6695444-1 (Version None)
Quarter: 2010Q2

REPORT INFORMATION
  Report Type: 
  Country: None (occurrence: None)
  Receive Date: 20100422
  Receipt Date: 20100422
  Transmission Date: 20101027
  Serious: No
  Sender: FDA-Public Use
  Company Number: None

PATIENT
  Age: 82 Year
  Sex: Female
  Weight: 64.8644 kg

DRUGS (2)
  1. OXYBUTYNIN 5 MG ER TABS(DIOTROPAN) [Suspect]
     Indication: DIARRHOEA
  2. OXYBUTYNIN 5 MG ER TABS(DIOTROPAN) [Suspect]
     Indication: INCONTINENCE

REACTIONS (2)
  - DRY MOUTH [None]
  - DRY THROAT [None]
